FAERS Safety Report 5923978-3 (Version None)
Quarter: 2008Q4

REPORT INFORMATION
  Report Type: 
  Country: None (occurrence: None)
  Receive Date: 20081015
  Receipt Date: 20081002
  Transmission Date: 20090506
  Serious: Yes (Death, Hospitalization)
  Sender: FDA-Public Use
  Company Number: 230233J08BRA

PATIENT
  Age: 65 Year
  Sex: Female

DRUGS (1)
  1. REBIF [Suspect]
     Indication: MULTIPLE SCLEROSIS
     Dosage: 3 IN 1 WEEKS
     Dates: start: 20011201

REACTIONS (6)
  - BLOOD PRESSURE FLUCTUATION [None]
  - GASTROINTESTINAL DISORDER [None]
  - HERNIA [None]
  - HYPOTENSION [None]
  - LUNG DISORDER [None]
  - MALAISE [None]
